FAERS Safety Report 6182265-1 (Version None)
Quarter: 2009Q2

REPORT INFORMATION
  Report Type: 
  Country: None (occurrence: None)
  Receive Date: 20090507
  Receipt Date: 20090430
  Transmission Date: 20091009
  Serious: Yes (Hospitalization)
  Sender: FDA-Public Use
  Company Number: JP-BRISTOL-MYERS SQUIBB COMPANY-14611503

PATIENT
  Age: 52 Year
  Sex: Male
  Weight: 61 kg

DRUGS (4)
  1. ERBITUX [Suspect]
     Indication: RECTAL CANCER
     Dosage: 690MG/M2:7JAN09;430MG/M2:14JAN09,4FEB09,18MAR09;300MG/M2:21JAN09,L2FEB09-12MAR09(28D),25MAR09-ONG
     Route: 042
     Dates: start: 20090107, end: 20090107
  2. IRINOTECAN HCL [Suspect]
     Indication: RECTAL CANCER
     Dosage: 100MG/M2 ON 07JAN09 70MG/M2 FROM 21JAN09 MOST RECENT INF 25MAR09
     Route: 042
     Dates: start: 20090107, end: 20090107
  3. DECADRON [Concomitant]
     Indication: PREMEDICATION
     Route: 042
     Dates: start: 20090107
  4. NAVOBAN [Concomitant]
     Indication: ANTIEMETIC SUPPORTIVE CARE
     Dosage: FORM = CAPS 1 DOSAGEFORM = 1 CAPSULE
     Route: 048
     Dates: start: 20090107

REACTIONS (1)
  - ANAEMIA [None]
